FAERS Safety Report 13076899 (Version 1)
Quarter: 2016Q4

REPORT INFORMATION
  Report Type: Spontaneous
  Country: NL (occurrence: NL)
  Receive Date: 20161230
  Receipt Date: 20161230
  Transmission Date: 20170207
  Serious: Yes (Other)
  Sender: FDA-Public Use
  Company Number: NL-PFIZER INC-2016600032

PATIENT
  Age: 11 Year
  Sex: Female
  Weight: 56 kg

DRUGS (8)
  1. PREDNISOLONE. [Suspect]
     Active Substance: PREDNISOLONE
     Indication: ECZEMA
     Dosage: 30 MG, 1X/DAY
     Route: 048
     Dates: start: 2000
  2. HYDROCORTISONE SODIUM SUCCINATE [Suspect]
     Active Substance: HYDROCORTISONE SODIUM SUCCINATE
     Indication: ECZEMA
     Dosage: 1 DF, EXTRA INFORMATION: APPLY THINLY
     Route: 003
     Dates: start: 2000
  3. BETAMETHASON /00008501/ [Suspect]
     Active Substance: BETAMETHASONE
     Indication: ECZEMA
     Dosage: 1 DF, EXTRA INFORMATION: APPLY THINLY
     Route: 003
     Dates: start: 2000
  4. TOPICORTE [Suspect]
     Active Substance: DESOXIMETASONE
     Indication: ECZEMA
     Dosage: 1 DF, EXTRA INFORMATION: APPLY THINLY
     Route: 003
     Dates: start: 2000
  5. PROTOPIC [Suspect]
     Active Substance: TACROLIMUS
     Indication: ECZEMA
     Dosage: 1 DF, EXTRA INFORMATION: APPLY THINLY
     Route: 003
     Dates: start: 2000
  6. TRIAMCINOLONACETONIDE [Suspect]
     Active Substance: TRIAMCINOLONE ACETONIDE
     Indication: ECZEMA
     Dosage: 1 DF, EXTRA INFORMATION: APPLY THINLY
     Route: 003
     Dates: start: 2000
  7. EMOVATE /00337102/ [Suspect]
     Active Substance: CLOBETASOL PROPIONATE
     Indication: ECZEMA
     Dosage: 1 DF, EXTRA INFORMATION: THIN
     Route: 003
     Dates: start: 2000
  8. DAKTACORT [Suspect]
     Active Substance: HYDROCORTISONE\MICONAZOLE NITRATE
     Indication: ECZEMA
     Dosage: 1 DF, EXTRA INFORMATION: APPLY THINLY
     Route: 003
     Dates: start: 2000

REACTIONS (1)
  - Steroid withdrawal syndrome [Not Recovered/Not Resolved]

NARRATIVE: CASE EVENT DATE: 20000101
